FAERS Safety Report 18206827 (Version 1)
Quarter: 2020Q3

REPORT INFORMATION
  Report Type: Spontaneous
  Country: US (occurrence: US)
  Receive Date: 20200827
  Receipt Date: 20200827
  Transmission Date: 20201103
  Serious: Yes (Hospitalization)
  Sender: FDA-Public Use
  Company Number: None

PATIENT
  Age: 31 Year
  Sex: Female
  Weight: 59.4 kg

DRUGS (5)
  1. LEVETIRACETAM TABLET [Suspect]
     Active Substance: LEVETIRACETAM
     Indication: EPILEPSY
     Route: 048
     Dates: start: 20200806, end: 20200815
  2. ASPIRIN 81 MG PO DAILY [Concomitant]
     Dates: start: 20200101
  3. TOPIRAMATE XR 200 MG DAILY [Concomitant]
  4. FLUDROCORTISONE 0.1 MG PO BID [Concomitant]
  5. METHYLPREDNISOLONE 4 MG DOSE PACK [Concomitant]
     Dates: start: 20200814, end: 20200815

REACTIONS (6)
  - Petechiae [None]
  - Vaginal haemorrhage [None]
  - Thrombocytopenia [None]
  - Contusion [None]
  - Therapy interrupted [None]
  - Gingival bleeding [None]

NARRATIVE: CASE EVENT DATE: 20200815
